FAERS Safety Report 24044986 (Version 1)
Quarter: 2024Q3

REPORT INFORMATION
  Report Type: Spontaneous
  Country: US (occurrence: US)
  Receive Date: 20240703
  Receipt Date: 20240703
  Transmission Date: 20241016
  Serious: No
  Sender: AMGEN
  Company Number: US-AMGEN-USASP2024128742

PATIENT
  Sex: Female

DRUGS (2)
  1. PROLIA [Suspect]
     Active Substance: DENOSUMAB
     Indication: Product used for unknown indication
     Dosage: UNK, Q6MO
     Route: 058
     Dates: end: 2021
  2. PROLIA [Suspect]
     Active Substance: DENOSUMAB
     Dosage: UNK, Q6MO
     Route: 058

REACTIONS (1)
  - Product dose omission issue [Unknown]
